FAERS Safety Report 7572319-7 (Version None)
Quarter: 2011Q2

REPORT INFORMATION
  Report Type: 
  Country: None (occurrence: None)
  Receive Date: 20110624
  Receipt Date: 20110616
  Transmission Date: 20111010
  Serious: Yes (Other)
  Sender: FDA-Public Use
  Company Number: PHFR2011GB03230

PATIENT
  Sex: Female
  Weight: 81.7 kg

DRUGS (6)
  1. FLOXACILLIN SODIUM [Concomitant]
     Dosage: 500 MG, QD4SDO
     Route: 048
     Dates: start: 20110426
  2. TRAMADOL HCL [Concomitant]
     Dosage: 50 DF, TID
     Route: 048
  3. ACETAMINOPHEN [Concomitant]
     Dosage: 1 G, QD4SDO
     Route: 048
  4. NEORAL [Suspect]
     Dosage: 175 MG, BID
     Route: 048
     Dates: start: 20110506, end: 20110516
  5. NEORAL [Suspect]
     Indication: PSORIASIS
     Dosage: 100 MG, BID
     Route: 048
     Dates: start: 20110427, end: 20110505
  6. AMITRIPTYLINE HCL [Concomitant]
     Dosage: UNK

REACTIONS (1)
  - NEUTROPENIA [None]
